FAERS Safety Report 26146707 (Version 1)
Quarter: 2025Q4

REPORT INFORMATION
  Report Type: Spontaneous
  Country: US (occurrence: US)
  Receive Date: 20251211
  Receipt Date: 20251211
  Transmission Date: 20260118
  Serious: Yes (Hospitalization, Other)
  Sender: PFIZER
  Company Number: US-PFIZER INC-202500238586

PATIENT
  Age: 61 Year
  Sex: Female

DRUGS (1)
  1. VELSIPITY [Suspect]
     Active Substance: ETRASIMOD ARGININE
     Dosage: UNK

REACTIONS (4)
  - Transient ischaemic attack [Unknown]
  - Blindness unilateral [Unknown]
  - Haemorrhage [Recovered/Resolved]
  - Diarrhoea [Unknown]
